FAERS Safety Report 7210130-7 (Version None)
Quarter: 2011Q1

REPORT INFORMATION
  Report Type: 
  Country: None (occurrence: None)
  Receive Date: 20110105
  Receipt Date: 20101223
  Transmission Date: 20110831
  Serious: Yes (Death, Hospitalization)
  Sender: FDA-Public Use
  Company Number: ES-ASTELLAS-2010EU006172

PATIENT
  Age: 46 Year
  Sex: Female

DRUGS (4)
  1. METHYLPREDNISOLONE [Suspect]
     Indication: LUNG TRANSPLANT
     Dosage: 12 MG, UID/QD
     Route: 048
  2. VALGANCICLOVIR HCL [Concomitant]
     Indication: ANTIVIRAL PROPHYLAXIS
     Dosage: 900 MG, BID
     Route: 048
     Dates: start: 20080424, end: 20080430
  3. MYCOPHENOLATE MOFETIL [Suspect]
     Indication: LUNG TRANSPLANT
     Dosage: 1 G, BID
     Route: 048
  4. TACROLIMUS [Suspect]
     Indication: LUNG TRANSPLANT
     Dosage: 1 MG, BID
     Route: 048

REACTIONS (2)
  - INFECTION [None]
  - HERPES ZOSTER [None]
